FAERS Safety Report 7069739-6 (Version None)
Quarter: 2010Q4

REPORT INFORMATION
  Report Type: 
  Country: None (occurrence: None)
  Receive Date: 20101028
  Receipt Date: 20100513
  Transmission Date: 20110411
  Serious: No
  Sender: FDA-Public Use
  Company Number: US-WYE-H15283310

PATIENT
  Sex: Female
  Weight: 55.84 kg

DRUGS (5)
  1. PROTONIX [Suspect]
     Dosage: UNKNOWN
     Route: 065
     Dates: start: 20100429, end: 20100101
  2. GABAPENTIN [Concomitant]
  3. DIAZEPAM [Concomitant]
  4. MELOXICAM [Concomitant]
  5. HYDROCODONE [Concomitant]

REACTIONS (1)
  - DRUG SCREEN POSITIVE [None]
